FAERS Safety Report 5481007-2 (Version None)
Quarter: 2007Q4

REPORT INFORMATION
  Report Type: 
  Country: None (occurrence: None)
  Receive Date: 20071009
  Receipt Date: 20071002
  Transmission Date: 20080405
  Serious: Yes (Hospitalization)
  Sender: FDA-Public Use
  Company Number: US-PFIZER INC-2007075079

PATIENT
  Age: 41 Year
  Sex: Male
  Weight: 122.5 kg

DRUGS (1)
  1. VARENICLINE TARTRATE [Suspect]
     Indication: SMOKING CESSATION THERAPY
     Route: 048
     Dates: start: 20070613, end: 20070816

REACTIONS (4)
  - DEPRESSED MOOD [None]
  - FLIGHT OF IDEAS [None]
  - HYPOTHYROIDISM [None]
  - SUICIDAL IDEATION [None]
